FAERS Safety Report 20128409 (Version 2)
Quarter: 2022Q1

REPORT INFORMATION
  Report Type: Report from Study
  Country: US (occurrence: None)
  Receive Date: 20211130
  Receipt Date: 20220118
  Transmission Date: 20220424
  Serious: Yes (Other)
  Sender: FDA-Public Use
  Company Number: US-Merck Healthcare KGaA-9282346

PATIENT
  Age: 63 Year
  Sex: Female

DRUGS (1)
  1. REBIF [Suspect]
     Active Substance: INTERFERON BETA-1A
     Indication: Multiple sclerosis
     Dosage: REBIF PRE-FILLED SYRINGE
     Route: 058
     Dates: start: 20131219

REACTIONS (3)
  - Bone marrow disorder [Unknown]
  - Neoplasm malignant [Unknown]
  - Chills [Unknown]

NARRATIVE: CASE EVENT DATE: 20200101
